FAERS Safety Report 4469478-1 (Version None)
Quarter: 2004Q4

REPORT INFORMATION
  Report Type: 
  Country: None (occurrence: None)
  Receive Date: 20041008
  Receipt Date: 20040929
  Transmission Date: 20050328
  Serious: Yes (Hospitalization)
  Sender: FDA-Public Use
  Company Number: FR-JNJFOC-20041000035

PATIENT
  Age: 84 Year
  Sex: Female
  Weight: 62 kg

DRUGS (12)
  1. RISPERDAL [Suspect]
     Indication: DRUG USE FOR UNKNOWN INDICATION
     Route: 049
  2. DICETEL [Suspect]
     Indication: DRUG USE FOR UNKNOWN INDICATION
     Route: 049
  3. EXELON [Suspect]
     Route: 049
  4. DIFFU-K [Suspect]
     Indication: DRUG USE FOR UNKNOWN INDICATION
     Route: 049
  5. HYTACAND [Concomitant]
  6. HYTACAND [Concomitant]
  7. AMLOR [Concomitant]
  8. PARIET [Concomitant]
  9. MOTILIUM [Concomitant]
  10. DOLIPRANE [Concomitant]
  11. INSULINES UMULINE NPH [Concomitant]
  12. FRAXIPARINE [Concomitant]

REACTIONS (4)
  - DRUG INTERACTION [None]
  - DYSPHAGIA [None]
  - MEDICATION ERROR [None]
  - MOUTH ULCERATION [None]
